FAERS Safety Report 4661374-X (Version None)
Quarter: 2005Q2

REPORT INFORMATION
  Report Type: 
  Country: None (occurrence: None)
  Receive Date: 20050512
  Receipt Date: 20050208
  Transmission Date: 20051028
  Serious: Yes (Disabling)
  Sender: FDA-Public Use
  Company Number: 05-05-0773

PATIENT
  Age: 66 Year
  Sex: Female
  Weight: 68 kg

DRUGS (3)
  1. METRONIDAZOLE [Suspect]
     Indication: INFECTION
     Dosage: ORAL
     Route: 048
     Dates: start: 20041001, end: 20041001
  2. ATORVASTATIN CALCIUM [Suspect]
     Indication: BLOOD CHOLESTEROL INCREASED
     Dosage: 20MG ORAL
     Route: 048
     Dates: start: 20020601, end: 20041101
  3. TELMISARTAN [Suspect]
     Indication: HYPERTENSION
     Dosage: 40MG ORAL
     Route: 048
     Dates: start: 20041101, end: 20041201

REACTIONS (3)
  - ALANINE AMINOTRANSFERASE ABNORMAL [None]
  - DRUG HYPERSENSITIVITY [None]
  - LIVER FUNCTION TEST ABNORMAL [None]
